FAERS Safety Report 21530497 (Version 1)
Quarter: 2022Q4

REPORT INFORMATION
  Report Type: Spontaneous
  Country: US (occurrence: US)
  Receive Date: 20221031
  Receipt Date: 20221031
  Transmission Date: 20230113
  Serious: Yes (Other)
  Sender: FDA-Public Use
  Company Number: US-ELI_LILLY_AND_COMPANY-US202210010401

PATIENT
  Age: 77 Year
  Sex: Male

DRUGS (7)
  1. HUMALOG [Suspect]
     Active Substance: INSULIN LISPRO
     Indication: Type 2 diabetes mellitus
     Dosage: UNK UNK, UNKNOWN
     Route: 065
     Dates: start: 2018
  2. HUMALOG [Suspect]
     Active Substance: INSULIN LISPRO
     Indication: Type 2 diabetes mellitus
     Dosage: UNK UNK, UNKNOWN
     Route: 065
     Dates: start: 2018
  3. HUMALOG [Suspect]
     Active Substance: INSULIN LISPRO
     Dosage: 5 U, TID (TAKE 4 TO 5 UNITS)
     Route: 065
     Dates: start: 2018
  4. HUMALOG [Suspect]
     Active Substance: INSULIN LISPRO
     Dosage: 5 U, TID (TAKE 4 TO 5 UNITS)
     Route: 065
     Dates: start: 2018
  5. HUMALOG [Suspect]
     Active Substance: INSULIN LISPRO
     Dosage: 6 U, PRN
     Route: 065
     Dates: start: 2018
  6. HUMALOG [Suspect]
     Active Substance: INSULIN LISPRO
     Dosage: 6 U, PRN
     Route: 065
     Dates: start: 2018
  7. LANTUS [Concomitant]
     Active Substance: INSULIN GLARGINE
     Indication: Diabetes mellitus
     Dosage: 6 U, UNKNOWN
     Route: 065

REACTIONS (3)
  - Prostate cancer [Unknown]
  - Blood glucose increased [Unknown]
  - Accidental underdose [Unknown]

NARRATIVE: CASE EVENT DATE: 20220301
